FAERS Safety Report 23902382 (Version 1)
Quarter: 2024Q2

REPORT INFORMATION
  Report Type: Spontaneous
  Country: DE (occurrence: DE)
  Receive Date: 20240527
  Receipt Date: 20240527
  Transmission Date: 20240716
  Serious: Yes (Other)
  Sender: FDA-Public Use
  Company Number: DE-ALKEM LABORATORIES LIMITED-DE-ALKEM-2024-10240

PATIENT
  Age: 64 Year
  Sex: Male

DRUGS (1)
  1. RILUZOLE [Suspect]
     Active Substance: RILUZOLE
     Indication: Amyotrophic lateral sclerosis
     Dosage: UNK, FILM-COATED TABLET
     Route: 065
     Dates: start: 20211001

REACTIONS (4)
  - Urinary retention [Unknown]
  - Glomerular filtration rate increased [Unknown]
  - Blood creatine decreased [Unknown]
  - Oedema [Unknown]
